FAERS Safety Report 8876020 (Version 1)
Quarter: 2012Q4

REPORT INFORMATION
  Report Type: 
  Country: GB (occurrence: GB)
  Receive Date: 20121030
  Receipt Date: 20121030
  Transmission Date: 20130627
  Serious: Yes (Other)
  Sender: FDA-Public Use
  Company Number: GB-UCBSA-069724

PATIENT
  Age: 26 Year
  Sex: Female

DRUGS (3)
  1. KEPPRA [Suspect]
     Dosage: DAILY DOSE  : 2500
  2. CLOBAZAM [Suspect]
     Dosage: DAILY DOSE  : 20
  3. EPILIM [Suspect]
     Dosage: DAILY DOSE : 1200

REACTIONS (2)
  - Teratogenicity [Unknown]
  - Pregnancy [Recovered/Resolved]
